FAERS Safety Report 8412534-3 (Version None)
Quarter: 2012Q2

REPORT INFORMATION
  Report Type: 
  Country: None (occurrence: None)
  Receive Date: 20120605
  Receipt Date: 20120521
  Transmission Date: 20120825
  Serious: No
  Sender: FDA-Public Use
  Company Number: US-AMGEN-USASP2012009255

PATIENT
  Age: 59 Year
  Sex: Female

DRUGS (1)
  1. ENBREL [Suspect]
     Indication: RHEUMATOID ARTHRITIS
     Dosage: 50 MG, QWK
     Dates: start: 20111107

REACTIONS (6)
  - GROIN PAIN [None]
  - ACCIDENT [None]
  - BACK PAIN [None]
  - MUSCULOSKELETAL PAIN [None]
  - FALL [None]
  - FLANK PAIN [None]
